FAERS Safety Report 9500766 (Version 1)
Quarter: 2013Q3

REPORT INFORMATION
  Report Type: Spontaneous
  Country: US (occurrence: US)
  Receive Date: 20130905
  Receipt Date: 20130905
  Transmission Date: 20140515
  Serious: Yes (Other)
  Sender: FDA-Public Use
  Company Number: US-ELI_LILLY_AND_COMPANY-US201308009618

PATIENT
  Age: 66 Year
  Sex: Male

DRUGS (2)
  1. CIALIS [Suspect]
     Indication: SEXUAL DYSFUNCTION
     Dosage: 5 MG, QD
     Dates: start: 20130813
  2. LYRICA [Concomitant]
     Indication: PAIN

REACTIONS (1)
  - Weight increased [Unknown]
